FAERS Safety Report 4485133-6 (Version None)
Quarter: 2004Q4

REPORT INFORMATION
  Report Type: 
  Country: None (occurrence: None)
  Receive Date: 20041026
  Receipt Date: 20031112
  Transmission Date: 20050328
  Serious: No
  Sender: FDA-Public Use
  Company Number: US-BRISTOL-MYERS SQUIBB COMPANY-12434056

PATIENT
  Age: 57 Year
  Sex: Male
  Weight: 85 kg

DRUGS (5)
  1. GLUCOPHAGE XR [Suspect]
     Indication: DIABETES MELLITUS
     Route: 048
  2. AVANDIA [Concomitant]
  3. AMARYL [Concomitant]
  4. LIPITOR [Concomitant]
  5. WELLBUTRIN [Concomitant]

REACTIONS (1)
  - DIARRHOEA [None]
